FAERS Safety Report 24306849 (Version 1)
Quarter: 2024Q3

REPORT INFORMATION
  Report Type: Spontaneous
  Country: GB (occurrence: GB)
  Receive Date: 20240911
  Receipt Date: 20240911
  Transmission Date: 20241017
  Serious: Yes (Life-Threatening, Hospitalization, Other)
  Sender: TORRENT
  Company Number: None

PATIENT
  Age: 66 Year
  Sex: Female

DRUGS (2)
  1. CLOPIDOGREL [Suspect]
     Active Substance: CLOPIDOGREL BISULFATE
     Indication: Peripheral vascular disorder
     Dosage: 75MG OD
     Route: 065
  2. ATORVASTATIN [Concomitant]
     Active Substance: ATORVASTATIN
     Indication: Blood cholesterol
     Dosage: 40 MG TABLETS OD AND 20 MG TABLETS OD, TOTAL DOSE 60 MG
     Route: 065

REACTIONS (2)
  - Subarachnoid haematoma [Unknown]
  - Generalised tonic-clonic seizure [Unknown]

NARRATIVE: CASE EVENT DATE: 20240824
